FAERS Safety Report 9121472 (Version 1)
Quarter: 2013Q1

REPORT INFORMATION
  Report Type: Spontaneous
  Country: US (occurrence: US)
  Receive Date: 20130225
  Receipt Date: 20130225
  Transmission Date: 20140127
  Serious: No
  Sender: FDA-Public Use
  Company Number: US-PFIZER INC-2013065355

PATIENT
  Age: 42 Year
  Sex: Female

DRUGS (5)
  1. PROTONIX [Suspect]
     Dosage: UNK
  2. BENADRYL [Suspect]
     Indication: HYPERSENSITIVITY
     Dosage: UNK
  3. LEXAPRO [Suspect]
     Dosage: UNK
  4. KLONOPIN [Suspect]
     Dosage: UNK
  5. VITAMIN D [Suspect]
     Dosage: UNK

REACTIONS (2)
  - Paraesthesia oral [Recovered/Resolved]
  - Dysgeusia [Unknown]
